FAERS Safety Report 23092367 (Version 1)
Quarter: 2023Q4

REPORT INFORMATION
  Report Type: Spontaneous
  Country: US (occurrence: None)
  Receive Date: 20231021
  Receipt Date: 20231021
  Transmission Date: 20240110
  Serious: Yes (Hospitalization, Other)
  Sender: FDA-Public Use
  Company Number: US-MICRO LABS LIMITED-ML2023-05935

PATIENT
  Age: 16 Year
  Sex: Female

DRUGS (1)
  1. BUPROPION [Suspect]
     Active Substance: BUPROPION
     Indication: Product used for unknown indication
     Dosage: 9300MG BUPROPION EXTENDED-RELEASE IN A SUICIDE ATTEMPT

REACTIONS (9)
  - Ileus [Unknown]
  - Confusional state [Unknown]
  - Pulmonary oedema [Unknown]
  - Seizure [Unknown]
  - Sinus tachycardia [Recovering/Resolving]
  - Agitation [Unknown]
  - Hypotension [Recovering/Resolving]
  - Suicide attempt [Unknown]
  - Intentional overdose [Unknown]
